FAERS Safety Report 4442927-0 (Version None)
Quarter: 2004Q3

REPORT INFORMATION
  Report Type: 
  Country: None (occurrence: None)
  Receive Date: 20040728
  Receipt Date: 20040514
  Transmission Date: 20050211
  Serious: No
  Sender: FDA-Public Use
  Company Number: USA040567585

PATIENT
  Age: 36 Year
  Sex: Female

DRUGS (2)
  1. STRATTERA (ATOMOXETINE HYDROCLORIDE) [Suspect]
     Indication: DISTURBANCE IN ATTENTION
     Dosage: 18 MG
  2. PHENTERMINE [Concomitant]

REACTIONS (1)
  - JAW DISORDER [None]
